FAERS Safety Report 18303116 (Version 2)
Quarter: 2020Q4

REPORT INFORMATION
  Report Type: Spontaneous
  Country: US (occurrence: US)
  Receive Date: 20200923
  Receipt Date: 20201007
  Transmission Date: 20210113
  Serious: No
  Sender: FDA-Public Use
  Company Number: US-GILEAD-2020-0496068

PATIENT
  Sex: Male

DRUGS (1)
  1. BIKTARVY [Suspect]
     Active Substance: BICTEGRAVIR SODIUM\EMTRICITABINE\TENOFOVIR ALAFENAMIDE FUMARATE
     Indication: HIV INFECTION
     Dosage: UNK
     Route: 048
     Dates: end: 20200921

REACTIONS (1)
  - Product use issue [Not Recovered/Not Resolved]

NARRATIVE: CASE EVENT DATE: 20200921
